FAERS Safety Report 6198082-2 (Version None)
Quarter: 2009Q2

REPORT INFORMATION
  Report Type: 
  Country: None (occurrence: None)
  Receive Date: 20090521
  Receipt Date: 20090519
  Transmission Date: 20091009
  Serious: No
  Sender: FDA-Public Use
  Company Number: US-B.I. PHARMACEUTICALS,INC./RIDGEFIELD-2009-BP-06217BP

PATIENT
  Age: 71 Year
  Sex: Male

DRUGS (3)
  1. FLOMAX [Suspect]
     Indication: BENIGN PROSTATIC HYPERPLASIA
     Dosage: .4MG
     Route: 048
     Dates: start: 20090512, end: 20090518
  2. FLOMAX [Suspect]
     Dosage: .8MG
     Route: 048
     Dates: start: 20090519
  3. CIPRO [Concomitant]
     Indication: INFECTION

REACTIONS (1)
  - URINARY RETENTION [None]
